FAERS Safety Report 16009260 (Version 3)
Quarter: 2019Q2

REPORT INFORMATION
  Report Type: Spontaneous
  Country: TH (occurrence: TH)
  Receive Date: 20190226
  Receipt Date: 20190430
  Transmission Date: 20190711
  Serious: Yes (Other)
  Sender: FDA-Public Use
  Company Number: TH-009507513-1902THA010994

PATIENT
  Age: 48 Year
  Sex: Male
  Weight: 60 kg

DRUGS (8)
  1. AMPHOTERICIN B. [Concomitant]
     Active Substance: AMPHOTERICIN B
     Indication: MUCORMYCOSIS
     Dosage: 1 MILLIGRAM/KILOGRAM, QD
     Route: 042
     Dates: start: 20160209, end: 20160213
  2. CASPOFUNGIN ACETATE. [Concomitant]
     Active Substance: CASPOFUNGIN ACETATE
     Indication: MUCORMYCOSIS
     Dosage: 70 MILLIGRAM
     Route: 042
     Dates: start: 20160222, end: 20160229
  3. AMBISOME [Concomitant]
     Active Substance: AMPHOTERICIN B
     Dosage: 7.5 MILLIGRAM/KILOGRAM, QD
     Route: 042
     Dates: start: 20160322, end: 20160325
  4. POSACONAZOLE [Suspect]
     Active Substance: POSACONAZOLE
     Indication: MUCORMYCOSIS
     Dosage: 5 MILLIGRAM, QID
     Route: 048
     Dates: start: 20160323
  5. DEFERIPRONE [Concomitant]
     Active Substance: DEFERIPRONE
     Indication: MUCORMYCOSIS
     Dosage: 100 MILLIGRAM, QD
     Route: 048
     Dates: start: 20160222, end: 20160308
  6. POSACONAZOLE [Suspect]
     Active Substance: POSACONAZOLE
     Indication: ANTIFUNGAL TREATMENT
     Dosage: 400 MILLIGRAM, BID
     Dates: end: 20160514
  7. AMBISOME [Concomitant]
     Active Substance: AMPHOTERICIN B
     Indication: MUCORMYCOSIS
     Dosage: 5 MILLIGRAM/KILOGRAM, QD
     Route: 042
     Dates: start: 20160214, end: 20160322
  8. AMPHOTERICIN B. [Concomitant]
     Active Substance: AMPHOTERICIN B
     Dosage: 1.5 MILLIGRAM/KILOGRAM, QD
     Route: 042
     Dates: start: 20160209, end: 20160213

REACTIONS (2)
  - Mucormycosis [Recovered/Resolved]
  - Drug ineffective [Unknown]

NARRATIVE: CASE EVENT DATE: 20160406
